FAERS Safety Report 10211159 (Version 2)
Quarter: 2014Q3

REPORT INFORMATION
  Report Type: Report from Study
  Country: US (occurrence: US)
  Receive Date: 20140602
  Receipt Date: 20140825
  Transmission Date: 20150326
  Serious: Yes (Death, Hospitalization, Other)
  Sender: FDA-Public Use
  Company Number: US-MPIJNJ-2014MPI001576

PATIENT
  Age: 67 Year
  Sex: Female
  Weight: 76.8 kg

DRUGS (4)
  1. VELCADE [Suspect]
     Active Substance: BORTEZOMIB
     Indication: ACUTE MYELOID LEUKAEMIA
     Dosage: 1.3 MG/M2, DAYS 1 AND 4
     Route: 058
     Dates: start: 20140424, end: 20140427
  2. SORAFENIB TOSYLATE [Suspect]
     Active Substance: SORAFENIB TOSYLATE
     Dosage: 200 MG, QPM DAYS 1-14
     Route: 048
     Dates: start: 20140424, end: 20140507
  3. DECITABINE. [Suspect]
     Active Substance: DECITABINE
     Indication: ACUTE MYELOID LEUKAEMIA
     Dosage: 20 MG/M2, IV ON DAYS 5-14
     Route: 042
     Dates: start: 20140424, end: 20140507
  4. SORAFENIB TOSYLATE [Suspect]
     Active Substance: SORAFENIB TOSYLATE
     Indication: ACUTE MYELOID LEUKAEMIA
     Dosage: 400 MG, QAM DAYS 1-14
     Route: 048
     Dates: start: 20140424, end: 20140507

REACTIONS (3)
  - Acute myeloid leukaemia [Fatal]
  - Enterocolitis [Not Recovered/Not Resolved]
  - Febrile neutropenia [Not Recovered/Not Resolved]

NARRATIVE: CASE EVENT DATE: 20140518
